FAERS Safety Report 24173440 (Version 1)
Quarter: 2024Q3

REPORT INFORMATION
  Report Type: Spontaneous
  Country: CA (occurrence: CA)
  Receive Date: 20240805
  Receipt Date: 20240805
  Transmission Date: 20241017
  Serious: Yes (Death, Hospitalization, Other)
  Sender: AMGEN
  Company Number: CA-SERVIER-S24009226

PATIENT
  Age: 82 Year
  Sex: Male
  Weight: 58.2 kg

DRUGS (1)
  1. IVABRADINE [Suspect]
     Active Substance: IVABRADINE
     Indication: Product used for unknown indication
     Dosage: UNK
     Route: 065

REACTIONS (5)
  - Septic shock [Fatal]
  - Cardiac failure [Fatal]
  - Clostridial sepsis [Fatal]
  - Hypovolaemic shock [Fatal]
  - Pneumococcal sepsis [Fatal]

NARRATIVE: CASE EVENT DATE: 20231101
